FAERS Safety Report 12463503 (Version 6)
Quarter: 2019Q2

REPORT INFORMATION
  Report Type: Report from Study
  Country: US (occurrence: US)
  Receive Date: 20160614
  Receipt Date: 20190507
  Transmission Date: 20190711
  Serious: No
  Sender: FDA-Public Use
  Company Number: PHEH2016US014029

PATIENT
  Age: 30 Year
  Sex: Male

DRUGS (3)
  1. COSENTYX [Suspect]
     Active Substance: SECUKINUMAB
     Dosage: 300 MG, QMO
     Route: 058
     Dates: start: 20160603
  2. COSENTYX [Suspect]
     Active Substance: SECUKINUMAB
     Indication: PSORIASIS
     Dosage: 300 MG, QMO
     Route: 058
     Dates: start: 20160531
  3. COSENTYX [Suspect]
     Active Substance: SECUKINUMAB
     Dosage: 300 MG, QMO
     Route: 058

REACTIONS (10)
  - Wrong technique in device usage process [Unknown]
  - Injection site haemorrhage [Unknown]
  - Dry skin [Recovered/Resolved]
  - Rash [Unknown]
  - Injection site pain [Unknown]
  - Injection site bruising [Unknown]
  - Therapeutic response shortened [Unknown]
  - Skin exfoliation [Recovered/Resolved]
  - Psoriasis [Unknown]
  - Injection site rash [Recovered/Resolved]

NARRATIVE: CASE EVENT DATE: 20160604
